FAERS Safety Report 4406268-X (Version None)
Quarter: 2004Q3

REPORT INFORMATION
  Report Type: 
  Country: None (occurrence: None)
  Receive Date: 20040723
  Receipt Date: 20030530
  Transmission Date: 20050211
  Serious: No
  Sender: FDA-Public Use
  Company Number: US-GLAXOSMITHKLINE-A0410175A

PATIENT
  Age: 62 Year
  Sex: Male

DRUGS (5)
  1. AVANDIA [Suspect]
     Dosage: 4MG PER DAY
     Route: 048
     Dates: start: 20030401
  2. GLYBURIDE [Concomitant]
     Dosage: 2.5MG PER DAY
  3. PRINIVIL [Concomitant]
  4. LIPITOR [Concomitant]
  5. TIMOPTIC-XE [Concomitant]

REACTIONS (3)
  - DRUG INEFFECTIVE [None]
  - HYPERGLYCAEMIA [None]
  - OEDEMA PERIPHERAL [None]
